FAERS Safety Report 4332774-2 (Version None)
Quarter: 2004Q1

REPORT INFORMATION
  Report Type: 
  Country: None (occurrence: None)
  Receive Date: 20040330
  Receipt Date: 20040316
  Transmission Date: 20041129
  Serious: Yes (Life-Threatening, Disabling)
  Sender: FDA-Public Use
  Company Number: JP-SHR-04-022657

PATIENT
  Age: 85 Year
  Sex: Female

DRUGS (5)
  1. PROSCOPE 240 (IOPROMIDE) N/A [Suspect]
     Indication: COMPUTERISED TOMOGRAM
     Dosage: 80 ML, 1 DOSE; INTRAVENOUS
     Route: 042
     Dates: start: 20040310, end: 20040310
  2. AMINOTRIPA 1 (ELECTROLYTES NOS, CARBOHYDRATES NOS, AMINO ACIDS NOS) [Concomitant]
  3. ZANTAC [Concomitant]
  4. ELEMENMIC (MINERALS NOS) [Concomitant]
  5. M.V.I. (RETINOL) [Concomitant]

REACTIONS (5)
  - ANAPHYLACTIC SHOCK [None]
  - BLOOD PRESSURE DECREASED [None]
  - LOSS OF CONSCIOUSNESS [None]
  - NAUSEA [None]
  - PRURITUS GENERALISED [None]
